FAERS Safety Report 18500234 (Version 1)
Quarter: 2020Q4

REPORT INFORMATION
  Report Type: Spontaneous
  Country: PL (occurrence: PL)
  Receive Date: 20201113
  Receipt Date: 20201113
  Transmission Date: 20210114
  Serious: Yes (Hospitalization)
  Sender: FDA-Public Use
  Company Number: PL-SUN PHARMACEUTICAL INDUSTRIES LTD-2020RR-267258

PATIENT
  Age: 34 Year
  Sex: Male

DRUGS (3)
  1. LEVETIRACETAM. [Suspect]
     Active Substance: LEVETIRACETAM
     Indication: EPILEPSY
     Dosage: 1000 MILLIGRAM, DAILY
     Route: 065
  2. VALPROIC ACID. [Suspect]
     Active Substance: VALPROIC ACID
     Indication: EPILEPSY
     Dosage: 600 MILLIGRAM, DAILY
     Route: 065
  3. VALPROIC ACID. [Suspect]
     Active Substance: VALPROIC ACID
     Dosage: 1000 MILLIGRAM, DAILY
     Route: 065

REACTIONS (3)
  - Delusional disorder, unspecified type [Recovering/Resolving]
  - Drug ineffective [Recovering/Resolving]
  - Anxiety disorder [Recovering/Resolving]
